FAERS Safety Report 25269528 (Version 2)
Quarter: 2025Q2

REPORT INFORMATION
  Report Type: Spontaneous
  Country: CH (occurrence: CH)
  Receive Date: 20250505
  Receipt Date: 20250507
  Transmission Date: 20250716
  Serious: Yes (Hospitalization, Other)
  Sender: MERCK SHARP & DOHME LLC
  Company Number: None

PATIENT
  Age: 65 Year
  Sex: Male
  Weight: 103 kg

DRUGS (15)
  1. NOXAFIL [Interacting]
     Active Substance: POSACONAZOLE
     Route: 048
     Dates: start: 20250105
  2. ENTRESTO [Suspect]
     Active Substance: SACUBITRIL\VALSARTAN
     Route: 048
     Dates: start: 20241230
  3. ENTRESTO [Suspect]
     Active Substance: SACUBITRIL\VALSARTAN
     Route: 048
     Dates: end: 20241223
  4. ARCOXIA [Suspect]
     Active Substance: ETORICOXIB
     Route: 048
     Dates: start: 20241220, end: 20241220
  5. ARCOXIA [Suspect]
     Active Substance: ETORICOXIB
     Route: 048
     Dates: start: 20241226, end: 20241226
  6. ARCOXIA [Suspect]
     Active Substance: ETORICOXIB
     Route: 048
     Dates: start: 20241225, end: 20241225
  7. PROGRAF [Interacting]
     Active Substance: TACROLIMUS
     Dosage: PAUSE AB 24.12.24, WEITER P.O. AB 25.12.24 NACH SPIEGELBESTIMMUNG
     Route: 048
     Dates: start: 20241225
  8. PROGRAF [Interacting]
     Active Substance: TACROLIMUS
     Route: 048
     Dates: start: 20241214, end: 20241215
  9. PROGRAF [Interacting]
     Active Substance: TACROLIMUS
     Route: 040
     Dates: start: 20241222, end: 20241222
  10. PROGRAF [Interacting]
     Active Substance: TACROLIMUS
     Route: 048
     Dates: start: 20241210, end: 20241213
  11. PROGRAF [Interacting]
     Active Substance: TACROLIMUS
     Route: 040
     Dates: start: 20241220, end: 20241221
  12. PROGRAF [Interacting]
     Active Substance: TACROLIMUS
     Route: 040
     Dates: start: 20241223, end: 20241223
  13. PROGRAF [Interacting]
     Active Substance: TACROLIMUS
     Route: 040
     Dates: start: 20241219, end: 20241219
  14. PROGRAF [Interacting]
     Active Substance: TACROLIMUS
     Route: 048
     Dates: start: 20241216, end: 20241217
  15. VANCOCIN [Suspect]
     Active Substance: VANCOMYCIN HYDROCHLORIDE
     Route: 040
     Dates: start: 20241219, end: 20241223

REACTIONS (4)
  - Nephropathy toxic [Recovering/Resolving]
  - Drug level above therapeutic [Recovered/Resolved]
  - Drug interaction [Recovering/Resolving]
  - Nephropathy toxic [Recovering/Resolving]

NARRATIVE: CASE EVENT DATE: 20241223
